FAERS Safety Report 13212355 (Version 1)
Quarter: 2017Q1

REPORT INFORMATION
  Report Type: Spontaneous
  Country: US (occurrence: US)
  Receive Date: 20170210
  Receipt Date: 20170210
  Transmission Date: 20170428
  Serious: Yes (Life-Threatening, Hospitalization, Other)
  Sender: FDA-Public Use
  Company Number: None

PATIENT
  Age: 20 Year
  Sex: Male
  Weight: 74.25 kg

DRUGS (1)
  1. RIFAMPIN. [Suspect]
     Active Substance: RIFAMPIN
     Indication: LATENT TUBERCULOSIS
     Route: 048
     Dates: start: 20170119, end: 20170129

REACTIONS (8)
  - Vomiting [None]
  - Acute kidney injury [None]
  - Jaundice [None]
  - Hypotension [None]
  - Abdominal pain [None]
  - Dialysis [None]
  - Nausea [None]
  - Hepatic failure [None]

NARRATIVE: CASE EVENT DATE: 20170130
